FAERS Safety Report 10483933 (Version 1)
Quarter: 2014Q3

REPORT INFORMATION
  Report Type: Spontaneous
  Country: US (occurrence: US)
  Receive Date: 20140930
  Receipt Date: 20140930
  Transmission Date: 20150326
  Serious: Yes (Hospitalization)
  Sender: FDA-Public Use
  Company Number: US-BAYER-2014-143555

PATIENT
  Age: 25 Year
  Sex: Female
  Weight: 85 kg

DRUGS (12)
  1. PHENERGAN [Concomitant]
     Active Substance: PROMETHAZINE HYDROCHLORIDE
     Route: 048
  2. PROCTOCREAM-HC [Concomitant]
     Indication: HAEMORRHOIDS
     Route: 061
  3. YAZ [Suspect]
     Active Substance: DROSPIRENONE\ETHINYL ESTRADIOL
  4. MOTRIN [Concomitant]
     Active Substance: IBUPROFEN
     Route: 048
  5. PERI-COLACE [Concomitant]
     Active Substance: CASANTHRANOL\DOCUSATE SODIUM
     Route: 048
  6. DILAUDID [Concomitant]
     Active Substance: HYDROMORPHONE HYDROCHLORIDE
     Indication: PAIN
  7. ATIVAN [Concomitant]
     Active Substance: LORAZEPAM
  8. PRENATAL VITAMINS [Concomitant]
     Active Substance: VITAMINS
  9. PERCOCET [Concomitant]
     Active Substance: ACETAMINOPHEN\OXYCODONE HYDROCHLORIDE
     Indication: PAIN
  10. VICODIN [Concomitant]
     Active Substance: ACETAMINOPHEN\HYDROCODONE BITARTRATE
  11. PEPCID [Concomitant]
     Active Substance: FAMOTIDINE
  12. YASMIN [Suspect]
     Active Substance: DROSPIRENONE\ETHINYL ESTRADIOL

REACTIONS (2)
  - Mesenteric vein thrombosis [Recovered/Resolved]
  - Portal vein thrombosis [None]

NARRATIVE: CASE EVENT DATE: 20041014
